FAERS Safety Report 6965212-1 (Version None)
Quarter: 2010Q3

REPORT INFORMATION
  Report Type: 
  Country: None (occurrence: None)
  Receive Date: 20100903
  Receipt Date: 20100826
  Transmission Date: 20110219
  Serious: Yes (Hospitalization, Other)
  Sender: FDA-Public Use
  Company Number: DE-AMGEN-KDL390242

PATIENT
  Sex: Male
  Weight: 74 kg

DRUGS (6)
  1. VECTIBIX [Suspect]
     Indication: COLORECTAL CANCER
     Route: 042
     Dates: start: 20090901, end: 20091112
  2. FENISTIL [Concomitant]
     Route: 042
     Dates: start: 20091101
  3. ACETAMINOPHEN [Concomitant]
     Route: 048
     Dates: start: 20091101
  4. MORPHINE [Concomitant]
  5. OMEPRAZOLE [Concomitant]
  6. LACTULOSE [Concomitant]

REACTIONS (16)
  - CHILLS [None]
  - CONSTIPATION [None]
  - CONVULSION [None]
  - DRUG RASH WITH EOSINOPHILIA AND SYSTEMIC SYMPTOMS [None]
  - DRY SKIN [None]
  - DYSPNOEA [None]
  - ERYTHEMA [None]
  - GENERAL PHYSICAL HEALTH DETERIORATION [None]
  - INFECTION [None]
  - NAIL DISORDER [None]
  - NAUSEA [None]
  - PAIN [None]
  - PRURITUS [None]
  - PYREXIA [None]
  - RASH [None]
  - RASH PUSTULAR [None]
